FAERS Safety Report 24883995 (Version 2)
Quarter: 2025Q2

REPORT INFORMATION
  Report Type: Spontaneous
  Country: JP (occurrence: JP)
  Receive Date: 20250124
  Receipt Date: 20250424
  Transmission Date: 20250717
  Serious: Yes (Other)
  Sender: BRISTOL-MYERS SQUIBB COMPANY
  Company Number: JP-TAKEDA-2025TJP000279

PATIENT

DRUGS (2)
  1. NIVOLUMAB [Suspect]
     Active Substance: NIVOLUMAB
     Indication: Renal cell carcinoma
  2. CABOMETYX [Suspect]
     Active Substance: CABOZANTINIB S-MALATE
     Indication: Renal cell carcinoma
     Route: 048

REACTIONS (15)
  - Adrenal insufficiency [Unknown]
  - Arthritis [Unknown]
  - Pneumonia [Unknown]
  - Hypothyroidism [Unknown]
  - Thrombocytopenia [Unknown]
  - Hepatic function abnormal [Unknown]
  - Hypertension [Unknown]
  - Diarrhoea [Unknown]
  - Proteinuria [Unknown]
  - Taste disorder [Unknown]
  - Palmar-plantar erythrodysaesthesia syndrome [Unknown]
  - Rash [Unknown]
  - Nausea [Unknown]
  - Stomatitis [Unknown]
  - Blood creatine phosphokinase increased [Unknown]
